FAERS Safety Report 12855778 (Version 1)
Quarter: 2016Q4

REPORT INFORMATION
  Report Type: Spontaneous
  Country: GB (occurrence: GB)
  Receive Date: 20161018
  Receipt Date: 20161018
  Transmission Date: 20170207
  Serious: Yes (Disabling)
  Sender: FDA-Public Use
  Company Number: GB-ROCHE-1841926

PATIENT
  Sex: Male

DRUGS (4)
  1. METHOTREXATE. [Concomitant]
     Active Substance: METHOTREXATE
  2. MABTHERA [Suspect]
     Active Substance: RITUXIMAB
     Indication: RHEUMATOID ARTHRITIS
     Route: 042
  3. PREDNISOLONE. [Concomitant]
     Active Substance: PREDNISOLONE
  4. METHYLPREDNISOLONE. [Concomitant]
     Active Substance: METHYLPREDNISOLONE

REACTIONS (26)
  - Rhinitis [Unknown]
  - Lymphatic obstruction [Unknown]
  - Chills [Unknown]
  - Disability [Unknown]
  - Joint range of motion decreased [Unknown]
  - Anxiety [Unknown]
  - Abdominal pain upper [Unknown]
  - Rheumatoid arthritis [Unknown]
  - Skin atrophy [Unknown]
  - Pain of skin [Unknown]
  - Rhinorrhoea [Unknown]
  - Alopecia [Unknown]
  - Ligament disorder [Unknown]
  - Skin haemorrhage [Unknown]
  - Pruritus [Unknown]
  - Sensory loss [Unknown]
  - Hyperhidrosis [Unknown]
  - Peripheral swelling [Recovering/Resolving]
  - Hyperaesthesia [Unknown]
  - Urticaria [Unknown]
  - Night sweats [Unknown]
  - Hypophagia [Unknown]
  - Tinnitus [Unknown]
  - Skin disorder [Unknown]
  - Fatigue [Unknown]
  - Immunosuppression [Unknown]
